FAERS Safety Report 25979221 (Version 1)
Quarter: 2025Q4

REPORT INFORMATION
  Report Type: Spontaneous
  Country: US (occurrence: None)
  Receive Date: 20251029
  Receipt Date: 20251029
  Transmission Date: 20260119
  Serious: Yes (Death)
  Sender: FDA-CTU
  Company Number: None

PATIENT
  Age: 69 Year
  Sex: Male
  Weight: 81.65 kg

DRUGS (1)
  1. ANCEF [Suspect]
     Active Substance: CEFAZOLIN SODIUM
     Indication: Antibiotic prophylaxis
     Dosage: 1  GRAM(S) -GM INTRAVENOUS
     Route: 042

REACTIONS (2)
  - Anaphylactic reaction [None]
  - Cardiac arrest [None]

NARRATIVE: CASE EVENT DATE: 20250909
